FAERS Safety Report 9190922 (Version 5)
Quarter: 2014Q2

REPORT INFORMATION
  Report Type: Report from Study
  Country: JP (occurrence: JP)
  Receive Date: 20130326
  Receipt Date: 20140506
  Transmission Date: 20141212
  Serious: Yes (Other)
  Sender: FDA-Public Use
  Company Number: JP-ROCHE-1206123

PATIENT
  Age: 76 Year
  Sex: Male

DRUGS (5)
  1. RANIBIZUMAB [Suspect]
     Indication: AGE-RELATED MACULAR DEGENERATION
     Route: 050
     Dates: start: 20110621, end: 20110621
  2. RANIBIZUMAB [Suspect]
     Route: 050
     Dates: start: 20110802, end: 20110802
  3. RANIBIZUMAB [Suspect]
     Route: 050
     Dates: start: 20111013
  4. RANIBIZUMAB [Suspect]
     Route: 050
     Dates: start: 20110906, end: 20110906
  5. VIGAMOX [Concomitant]
     Route: 065
     Dates: start: 201106, end: 201109

REACTIONS (2)
  - Retinal haemorrhage [Unknown]
  - Visual acuity reduced [Recovered/Resolved]
